FAERS Safety Report 9766196 (Version 1)
Quarter: 2013Q4

REPORT INFORMATION
  Report Type: Spontaneous
  Country: US (occurrence: US)
  Receive Date: 20131217
  Receipt Date: 20131217
  Transmission Date: 20140711
  Serious: No
  Sender: FDA-Public Use
  Company Number: US-GLAXOSMITHKLINE-A1022062A

PATIENT
  Age: 57 Year
  Sex: Female
  Weight: 58.6 kg

DRUGS (5)
  1. VOTRIENT [Suspect]
     Indication: PRODUCT USED FOR UNKNOWN INDICATION
     Dosage: 800MG PER DAY
     Route: 048
     Dates: start: 2013, end: 2013
  2. HYDROCORTISONE [Concomitant]
  3. ALPRAZOLAM [Concomitant]
  4. VITAMIN D [Concomitant]
  5. CITRACAL PLUS [Concomitant]

REACTIONS (4)
  - Blood pressure increased [Unknown]
  - Headache [Unknown]
  - Weight decreased [Unknown]
  - Visual impairment [Unknown]
